FAERS Safety Report 9516815 (Version 1)
Quarter: 2013Q1

REPORT INFORMATION
  Report Type: Spontaneous
  Country: US (occurrence: None)
  Receive Date: 20130305
  Receipt Date: 20130305
  Transmission Date: 20140127
  Serious: Yes (Other)
  Sender: FDA-Public Use
  Company Number: 163-21880-12011227

PATIENT
  Age: 74 Year
  Sex: Female

DRUGS (8)
  1. REVLIMID (LENALIDOMIDE) (CAPSULES) [Suspect]
     Indication: PLASMA CELL MYELOMA
     Route: 048
     Dates: start: 201102, end: 201107
  2. DECADRON (DEXAMETHASONE) [Concomitant]
  3. ASPIRIN [Concomitant]
  4. LOSARTAN [Concomitant]
  5. ATENOLOL [Concomitant]
  6. TRAMADOL [Concomitant]
  7. AMLODIPINE (AMLODIPINE) [Concomitant]
  8. POTASSIUM CHLORIDE [Concomitant]

REACTIONS (2)
  - Thrombosis [None]
  - Normochromic normocytic anaemia [None]
